FAERS Safety Report 5369092-X (Version None)
Quarter: 2007Q2

REPORT INFORMATION
  Report Type: 
  Country: None (occurrence: None)
  Receive Date: 20070625
  Receipt Date: 20061221
  Transmission Date: 20071010
  Serious: No
  Sender: FDA-Public Use
  Company Number: US-ASTRAZENECA-2006UW28407

PATIENT
  Age: 85 Year
  Sex: Male
  Weight: 81.6 kg

DRUGS (11)
  1. CRESTOR [Suspect]
     Indication: BLOOD CHOLESTEROL INCREASED
     Route: 048
     Dates: start: 20061219
  2. ALLOPURINOL [Concomitant]
  3. NIFEDIPINE [Concomitant]
  4. HYDROCHLOROTHIAZIDE [Concomitant]
  5. TOPROL-XL [Concomitant]
     Route: 048
  6. BENAZEPRIL HYDROCHLORIDE [Concomitant]
  7. BOT CHLOR XR [Concomitant]
  8. DIPYRIDAMOLE [Concomitant]
  9. KLOR-CON [Concomitant]
  10. PENICILLIN [Concomitant]
  11. PORCARPIAM [Concomitant]

REACTIONS (1)
  - HICCUPS [None]
